FAERS Safety Report 5383780-0 (Version None)
Quarter: 2007Q3

REPORT INFORMATION
  Report Type: 
  Country: None (occurrence: None)
  Receive Date: 20070702
  Receipt Date: 20070510
  Transmission Date: 20080115
  Serious: No
  Sender: FDA-Public Use
  Company Number: 2007PV032916

PATIENT
  Age: 72 Year
  Sex: Female
  Weight: 97.977 kg

DRUGS (2)
  1. SYMLIN [Suspect]
     Indication: DIABETES MELLITUS
     Dosage: 15 MCG;SC
     Route: 058
     Dates: start: 20070401
  2. NOVALOG [Concomitant]

REACTIONS (1)
  - INJECTION SITE BRUISING [None]
